FAERS Safety Report 10184716 (Version 3)
Quarter: 2014Q3

REPORT INFORMATION
  Report Type: Spontaneous
  Country: US (occurrence: None)
  Receive Date: 20140519
  Receipt Date: 20140910
  Transmission Date: 20150326
  Serious: Yes (Death, Hospitalization, Other)
  Sender: FDA-Public Use
  Company Number: UNT-2014-000120

PATIENT
  Age: 74 Year
  Sex: Female
  Weight: 67.1 kg

DRUGS (2)
  1. REMODULIN [Suspect]
     Active Substance: TREPROSTINIL
     Indication: COR PULMONALE CHRONIC
     Dosage: 0.010 UG/KG/MIN, CONTINUING, SUBCUTANEOUS?
     Route: 058
     Dates: start: 20131213
  2. REVATIO (SIDENAFIL CITRATE) [Concomitant]

REACTIONS (5)
  - Flushing [None]
  - Accidental overdose [None]
  - Blood glucose increased [None]
  - Headache [None]
  - Nausea [None]

NARRATIVE: CASE EVENT DATE: 2014
